FAERS Safety Report 15282189 (Version 2)
Quarter: 2018Q3

REPORT INFORMATION
  Report Type: Report from Study
  Country: US (occurrence: US)
  Receive Date: 20180815
  Receipt Date: 20180920
  Transmission Date: 20181010
  Serious: Yes (Hospitalization, Other)
  Sender: FDA-Public Use
  Company Number: US-EXELIXIS-XL18418015018

PATIENT
  Age: 54 Year
  Sex: Male
  Weight: 85.3 kg

DRUGS (19)
  1. ULTRAM [Concomitant]
     Active Substance: TRAMADOL HYDROCHLORIDE
  2. PROBIOTIC [Concomitant]
     Active Substance: PROBIOTICS NOS
  3. VITAMIN B12 [Concomitant]
     Active Substance: CYANOCOBALAMIN
  4. MAXALT?MLT [Concomitant]
     Active Substance: RIZATRIPTAN BENZOATE
  5. CARAFATE [Concomitant]
     Active Substance: SUCRALFATE
  6. NAPROSYN [Concomitant]
     Active Substance: NAPROXEN
  7. PRILOSEC [Concomitant]
     Active Substance: OMEPRAZOLE MAGNESIUM
  8. XL184 [Suspect]
     Active Substance: CABOZANTINIB
     Dosage: 20 MG, QD
     Route: 048
     Dates: end: 20180704
  9. PAXIL [Concomitant]
     Active Substance: PAROXETINE HYDROCHLORIDE
  10. MULTIVITAMIN [Concomitant]
     Active Substance: VITAMINS
  11. MORPHINE [Concomitant]
     Active Substance: MORPHINE
  12. ATEZOLIZUMAB. [Suspect]
     Active Substance: ATEZOLIZUMAB
     Indication: HORMONE-REFRACTORY PROSTATE CANCER
     Dosage: 1200 MG, Q3WEEKS
     Route: 042
     Dates: start: 20180424, end: 20180614
  13. XANAX [Concomitant]
     Active Substance: ALPRAZOLAM
  14. XL184 [Suspect]
     Active Substance: CABOZANTINIB
     Indication: HORMONE-REFRACTORY PROSTATE CANCER
     Dosage: 40 MG, QD
     Route: 048
     Dates: start: 20180424
  15. MIGRELIEF [Concomitant]
  16. TESSALON [Concomitant]
     Active Substance: BENZONATATE
  17. LUPRON [Concomitant]
     Active Substance: LEUPROLIDE ACETATE
  18. CIALIS [Concomitant]
     Active Substance: TADALAFIL
  19. XGEVA [Concomitant]
     Active Substance: DENOSUMAB

REACTIONS (7)
  - Lung infection [Recovering/Resolving]
  - Blood bilirubin increased [Recovered/Resolved]
  - Pleural effusion [Not Recovered/Not Resolved]
  - Hepatitis A [Not Recovered/Not Resolved]
  - Clostridium difficile colitis [Not Recovered/Not Resolved]
  - Transaminases increased [Recovered/Resolved]
  - Hypoxia [Recovered/Resolved]

NARRATIVE: CASE EVENT DATE: 20180705
